FAERS Safety Report 6298286-4 (Version None)
Quarter: 2009Q3

REPORT INFORMATION
  Report Type: 
  Country: None (occurrence: None)
  Receive Date: 20090805
  Receipt Date: 20090731
  Transmission Date: 20100115
  Serious: Yes (Death, Hospitalization)
  Sender: FDA-Public Use
  Company Number: US-ELI_LILLY_AND_COMPANY-US200907005122

PATIENT
  Sex: Male
  Weight: 47.619 kg

DRUGS (7)
  1. GEMZAR [Suspect]
     Indication: NON-SMALL CELL LUNG CANCER METASTATIC
     Dosage: 1600 MG, OTHER; ONE DOSE
     Route: 042
     Dates: start: 20090108, end: 20090115
  2. CARBOPLATIN [Concomitant]
     Indication: NON-SMALL CELL LUNG CANCER METASTATIC
     Dosage: 400 MG, OTHER; ONE TIME ONLY
     Route: 042
     Dates: start: 20090108, end: 20090108
  3. ALOXI [Concomitant]
     Dosage: 0.25 MG, UNK
     Route: 042
     Dates: start: 20090108
  4. PROCHLORPERAZINE MALEATE [Concomitant]
     Dosage: 10 MG, AS NEEDED Q 6 HRS
     Route: 048
     Dates: start: 20081229
  5. PROPOXYPHENE NAPSYLATE W/ ACETAMINOPHEN [Concomitant]
     Dosage: UNK, AS NEEDED Q 4 HRS
     Dates: start: 20090110
  6. FENTANYL [Concomitant]
     Dosage: 25 UG, OTHER Q 72 HOURS
     Route: 062
  7. ACETAMINOPHEN AND HYDROCODONE BITARTRATE [Concomitant]
     Dosage: 10 MG, AS NEEDED Q 6 HSRS
     Route: 048
     Dates: start: 20090113

REACTIONS (3)
  - CARDIO-RESPIRATORY ARREST [None]
  - MALIGNANT NEOPLASM PROGRESSION [None]
  - SEPSIS [None]
